FAERS Safety Report 6568493-1 (Version None)
Quarter: 2010Q1

REPORT INFORMATION
  Report Type: 
  Country: None (occurrence: None)
  Receive Date: 20100203
  Receipt Date: 20100127
  Transmission Date: 20100710
  Serious: Yes (Other)
  Sender: FDA-Public Use
  Company Number: B0629418A

PATIENT
  Age: 74 Year
  Sex: Male

DRUGS (5)
  1. ZANTAC [Suspect]
     Indication: DRUG USE FOR UNKNOWN INDICATION
     Route: 042
  2. TAXOL [Concomitant]
     Route: 042
  3. GRANISETRON [Concomitant]
     Route: 042
  4. DECADRON [Concomitant]
  5. POLARAMINE [Concomitant]

REACTIONS (5)
  - ABDOMINAL PAIN [None]
  - BLOOD PRESSURE DECREASED [None]
  - DIARRHOEA [None]
  - SHOCK [None]
  - VOMITING [None]
